FAERS Safety Report 6362090-9 (Version None)
Quarter: 2009Q3

REPORT INFORMATION
  Report Type: 
  Country: None (occurrence: None)
  Receive Date: 20090918
  Receipt Date: 20090916
  Transmission Date: 20100115
  Serious: Yes (Death, Hospitalization)
  Sender: FDA-Public Use
  Company Number: PHHY2009BR39867

PATIENT
  Sex: Male

DRUGS (4)
  1. EXELON [Suspect]
     Dosage: 9MG/5CM2
     Route: 062
     Dates: end: 20090301
  2. EXELON [Suspect]
     Dosage: 18MG/10CM2
     Route: 062
     Dates: start: 20090301
  3. ZYPREXA [Concomitant]
     Indication: HALLUCINATION
     Dosage: 1 TABLET DAILY
     Route: 048
     Dates: start: 20090201
  4. RISPERDAL [Concomitant]
     Indication: HALLUCINATION
     Dosage: 2 TABLETS DAILY
     Route: 048
     Dates: start: 20090201

REACTIONS (5)
  - CEREBROVASCULAR ACCIDENT [None]
  - ISCHAEMIA [None]
  - LUNG INFECTION [None]
  - PNEUMONIA [None]
  - SEPSIS [None]
